FAERS Safety Report 10694823 (Version 1)
Quarter: 2015Q1

REPORT INFORMATION
  Report Type: Spontaneous
  Country: US (occurrence: None)
  Receive Date: 20150105
  Receipt Date: 20150105
  Transmission Date: 20150721
  Serious: Yes (Hospitalization, Other)
  Sender: FDA-Public Use
  Company Number: None

PATIENT
  Age: 54 Year
  Sex: Female
  Weight: 44.91 kg

DRUGS (6)
  1. OMEPRAZOLE. [Concomitant]
     Active Substance: OMEPRAZOLE
  2. VESICARE [Concomitant]
     Active Substance: SOLIFENACIN SUCCINATE
  3. LEVOFLOXACIN. [Suspect]
     Active Substance: LEVOFLOXACIN
     Indication: UPPER RESPIRATORY TRACT INFECTION
     Dosage: 500 MG, 10 TABLETS 1XA DY PILL TAKEN BY MOUTH BEFORE BEDTIME
     Route: 048
     Dates: start: 20141125, end: 20141128
  4. IBUPROFEN. [Concomitant]
     Active Substance: IBUPROFEN
  5. HJORMONES [Concomitant]
  6. CELEBREX [Concomitant]
     Active Substance: CELECOXIB

REACTIONS (7)
  - Loss of consciousness [None]
  - Road traffic accident [None]
  - Confusional state [None]
  - Insomnia [None]
  - Decreased appetite [None]
  - Weight decreased [None]
  - Seizure [None]

NARRATIVE: CASE EVENT DATE: 20141125
